FAERS Safety Report 4799749-0 (Version None)
Quarter: 2005Q4

REPORT INFORMATION
  Report Type: 
  Country: None (occurrence: None)
  Receive Date: 20051011
  Receipt Date: 20051011
  Transmission Date: 20060501
  Serious: Yes (Hospitalization)
  Sender: FDA-Public Use
  Company Number: None

PATIENT
  Sex: Female
  Weight: 49.4421 kg

DRUGS (10)
  1. COUMADIN [Suspect]
     Indication: ATRIAL FIBRILLATION
     Dosage: 2.5MG  PO  QD  (THERAPY DATES: PRIOR TO ADMISSION)
     Route: 048
  2. DIGOXIN [Concomitant]
  3. CLONAZEPAM [Concomitant]
  4. ZOLOFT [Concomitant]
  5. EVISTA [Concomitant]
  6. PREVACID [Concomitant]
  7. LASIX [Concomitant]
  8. POTASSIUM CHLORIDE [Concomitant]
  9. LOPRESSOR [Concomitant]
  10. NASONEX [Concomitant]

REACTIONS (2)
  - COAGULOPATHY [None]
  - DIZZINESS [None]
